FAERS Safety Report 16941284 (Version 1)
Quarter: 2019Q4

REPORT INFORMATION
  Report Type: Spontaneous
  Country: GB (occurrence: GB)
  Receive Date: 20191021
  Receipt Date: 20191021
  Transmission Date: 20200122
  Serious: Yes (Life-Threatening)
  Sender: FDA-Public Use
  Company Number: GB-AMNEAL PHARMACEUTICALS-2019-AMRX-02334

PATIENT
  Age: 30 Year
  Sex: Female

DRUGS (2)
  1. ADRENACLICK [Suspect]
     Active Substance: EPINEPHRINE
     Indication: EPIDURAL TEST DOSE
     Dosage: 5 MICROGRAM/ML, 3 MILLILITER, SINGLE
     Route: 008
  2. LIDOCAINE. [Suspect]
     Active Substance: LIDOCAINE
     Indication: EPIDURAL TEST DOSE
     Dosage: 3 MILLILITER, 2 PERCENT, SINGLE
     Route: 008

REACTIONS (3)
  - Intracranial hypotension [Recovering/Resolving]
  - Subdural haemorrhage [Recovering/Resolving]
  - Exposure during pregnancy [Unknown]
